FAERS Safety Report 14773873 (Version 3)
Quarter: 2020Q4

REPORT INFORMATION
  Report Type: Spontaneous
  Country: JP (occurrence: JP)
  Receive Date: 20180418
  Receipt Date: 20201215
  Transmission Date: 20210113
  Serious: Yes (Death, Life-Threatening, Hospitalization)
  Sender: FDA-Public Use
  Company Number: JP-BAYER-2018-040284

PATIENT
  Age: 66 Year
  Sex: Male
  Weight: 58.4 kg

DRUGS (5)
  1. XOFIGO [Suspect]
     Active Substance: RADIUM RA-223 DICHLORIDE
     Indication: METASTASES TO BONE
     Dosage: 55 KBQ/KG
     Route: 042
     Dates: start: 20171213, end: 20171213
  2. XOFIGO [Suspect]
     Active Substance: RADIUM RA-223 DICHLORIDE
     Indication: HORMONE-REFRACTORY PROSTATE CANCER
     Dosage: 55 KBQ/KG
     Route: 042
     Dates: start: 20180110, end: 20180110
  3. XOFIGO [Suspect]
     Active Substance: RADIUM RA-223 DICHLORIDE
     Indication: HORMONE-REFRACTORY PROSTATE CANCER
     Dosage: 55 KBQ/KG
     Route: 042
     Dates: start: 20180207, end: 20180207
  4. XOFIGO [Suspect]
     Active Substance: RADIUM RA-223 DICHLORIDE
     Indication: HORMONE-REFRACTORY PROSTATE CANCER
     Dosage: 55 KBQ/KG
     Route: 042
     Dates: start: 20180307, end: 20180307
  5. XOFIGO [Suspect]
     Active Substance: RADIUM RA-223 DICHLORIDE
     Indication: HORMONE-REFRACTORY PROSTATE CANCER
     Dosage: 55 KBQ/KG
     Route: 042
     Dates: start: 20171115, end: 20171115

REACTIONS (6)
  - Dehydration [Recovered/Resolved]
  - Hormone-refractory prostate cancer [Fatal]
  - Altered state of consciousness [Recovered/Resolved]
  - Diarrhoea [Recovering/Resolving]
  - Hypernatraemia [None]
  - Fall [None]

NARRATIVE: CASE EVENT DATE: 20171118
